FAERS Safety Report 11702298 (Version 4)
Quarter: 2016Q2

REPORT INFORMATION
  Report Type: Spontaneous
  Country: US (occurrence: US)
  Receive Date: 20151105
  Receipt Date: 20160608
  Transmission Date: 20160815
  Serious: Yes (Hospitalization, Disabling, Other)
  Sender: FDA-Public Use
  Company Number: US-009507513-0706USA03505

PATIENT
  Sex: Female

DRUGS (5)
  1. CALCIUM (UNSPECIFIED) [Concomitant]
     Active Substance: CALCIUM
     Indication: PRODUCT USED FOR UNKNOWN INDICATION
     Dosage: 1200 MG, QD
     Route: 048
     Dates: start: 2000
  2. ASCORBIC ACID. [Concomitant]
     Active Substance: ASCORBIC ACID
     Indication: PRODUCT USED FOR UNKNOWN INDICATION
     Dosage: 1000 MG, QD
     Route: 048
     Dates: start: 2000
  3. FOSAMAX [Suspect]
     Active Substance: ALENDRONATE SODIUM
     Indication: OSTEOPOROSIS
     Dosage: 35 MG, QW
     Route: 048
     Dates: start: 20000918, end: 20080124
  4. CARDIZEM [Concomitant]
     Active Substance: DILTIAZEM HYDROCHLORIDE
     Indication: HYPERTENSION
     Dosage: UNK, UNKNOWN
     Route: 065
     Dates: start: 1999, end: 200209
  5. VITAMINS (UNSPECIFIED) [Concomitant]
     Active Substance: VITAMINS
     Indication: PRODUCT USED FOR UNKNOWN INDICATION
     Dosage: 1 DF, QD
     Route: 048
     Dates: start: 2000

REACTIONS (38)
  - Femur fracture [Not Recovered/Not Resolved]
  - Herpes zoster [Unknown]
  - Transfusion [Unknown]
  - Obsessive-compulsive disorder [Unknown]
  - Arthritis [Unknown]
  - Haemorrhoids [Unknown]
  - Fracture nonunion [Unknown]
  - Arthropathy [Unknown]
  - Arthropathy [Unknown]
  - Femur fracture [Not Recovered/Not Resolved]
  - Gastrointestinal tract adenoma [Unknown]
  - Osteoporosis [Unknown]
  - Pain in extremity [Unknown]
  - Arthropathy [Unknown]
  - Contusion [Unknown]
  - Rheumatoid arthritis [Unknown]
  - Appendicectomy [Unknown]
  - Cataract [Unknown]
  - Urinary tract infection [Unknown]
  - Internal fixation of fracture [Unknown]
  - Anaemia postoperative [Unknown]
  - Osteonecrosis of jaw [Unknown]
  - Gastrooesophageal reflux disease [Unknown]
  - Device failure [Recovering/Resolving]
  - Internal fixation of fracture [Unknown]
  - Oesophagitis [Unknown]
  - Cholecystectomy [Unknown]
  - Wound complication [Unknown]
  - Abscess [Unknown]
  - Impaired healing [Unknown]
  - Fall [Unknown]
  - Impaired healing [Unknown]
  - Increased tendency to bruise [Unknown]
  - Infection [Unknown]
  - Anaemia postoperative [Unknown]
  - Constipation [Unknown]
  - Abasia [Unknown]
  - Cardiac valve disease [Unknown]

NARRATIVE: CASE EVENT DATE: 200110
